FAERS Safety Report 9164616 (Version 1)
Quarter: 2013Q1

REPORT INFORMATION
  Report Type: Spontaneous
  Country: CA (occurrence: US)
  Receive Date: 20130315
  Receipt Date: 20130315
  Transmission Date: 20140127
  Serious: Yes (Disabling, Other)
  Sender: FDA-Public Use
  Company Number: CA-JNJFOC-20130306959

PATIENT
  Sex: Male
  Weight: 72.58 kg

DRUGS (21)
  1. LEVAQUIN [Suspect]
     Indication: SEPSIS
     Route: 065
     Dates: start: 200806
  2. CIPRO XL [Suspect]
     Indication: SEPSIS
     Route: 065
  3. TYLENOL [Concomitant]
     Dosage: 1-2 DOSES EVERY 4 HOURS AS NECESSARY
     Route: 065
  4. FLOMAX CR [Concomitant]
     Indication: URINARY RETENTION
     Route: 065
  5. DIOVAN [Concomitant]
     Indication: HYPERTENSION
     Route: 048
  6. IMOVANE [Concomitant]
     Dosage: AT NIGHT TIME AS NECESSARY
     Route: 048
  7. IMOVANE [Concomitant]
     Dosage: AT NIGHT TIME AS NECESSARY
     Route: 048
  8. EPIPEN [Concomitant]
     Route: 065
  9. DICLOFENAC POTASSIUM [Concomitant]
     Route: 048
  10. SENOKOT [Concomitant]
     Dosage: 1-2 DOSES AS NECESSARY
     Route: 065
  11. HYDROMORPHONE HYDROCHLORIDE [Concomitant]
     Dosage: 1-2MG, 2-4 MG
     Route: 048
  12. SATIVEX [Concomitant]
     Dosage: 2-3 SPRAYS ONCE DAILY
     Route: 065
  13. LYRICA [Concomitant]
     Dosage: 2-4 TIMES A DAY
     Route: 048
  14. CYMBALTA [Concomitant]
     Route: 048
  15. OXYCODONE [Concomitant]
     Dosage: 3-5 DOSES ONCE A DAY
     Route: 065
  16. BENADRYL [Concomitant]
     Dosage: AS NECESSARY
     Route: 065
  17. METAMUCIL [Concomitant]
     Route: 065
  18. HYDROMORPH CONTIN [Concomitant]
     Route: 065
  19. PERCOCET [Concomitant]
     Dosage: 1-2 EVERY 4 HOURS AS NECESSARY
     Route: 048
  20. CIALIS [Concomitant]
     Dosage: AS DIRECTED
     Route: 048
  21. ANUSOL HC [Concomitant]
     Dosage: AS NECESSARY
     Route: 065

REACTIONS (5)
  - Gait disturbance [Unknown]
  - Neuropathy peripheral [Not Recovered/Not Resolved]
  - Sleep apnoea syndrome [Unknown]
  - Inguinal hernia [Recovered/Resolved]
  - Weight increased [Unknown]
